FAERS Safety Report 4630274-3 (Version None)
Quarter: 2005Q2

REPORT INFORMATION
  Report Type: 
  Country: None (occurrence: None)
  Receive Date: 20050406
  Receipt Date: 20050323
  Transmission Date: 20051028
  Serious: Yes (Hospitalization)
  Sender: FDA-Public Use
  Company Number: FR_050306122

PATIENT
  Age: 57 Year
  Sex: Female

DRUGS (6)
  1. CELANCE (PERGOLIDE MESYLATE) [Suspect]
     Indication: PARKINSON'S DISEASE
     Dosage: 0.05 MG/3 DAY
     Dates: start: 20020815, end: 20050131
  2. LIBRAX [Concomitant]
  3. NISISCO [Concomitant]
  4. LERCAN (LERCANIPIDINE HYDROCHLORIDE) [Concomitant]
  5. PROPRANOLOL [Concomitant]
  6. METOSPASMYL [Concomitant]

REACTIONS (2)
  - CARDIAC MURMUR [None]
  - MITRAL VALVE INCOMPETENCE [None]
